FAERS Safety Report 23762531 (Version 5)
Quarter: 2025Q2

REPORT INFORMATION
  Report Type: Spontaneous
  Country: JP (occurrence: JP)
  Receive Date: 20240419
  Receipt Date: 20250529
  Transmission Date: 20250717
  Serious: Yes (Hospitalization)
  Sender: EISAI
  Company Number: JP-Eisai-202400630_LEN_P_1

PATIENT
  Age: 50 Year
  Sex: Female

DRUGS (2)
  1. LENVIMA [Suspect]
     Active Substance: LENVATINIB
     Indication: Thyroid cancer
     Dosage: INCREASE OR DECREASE ACCORDINGLY
     Dates: start: 201904, end: 202011
  2. NEXAVAR [Suspect]
     Active Substance: SORAFENIB
     Indication: Thyroid cancer

REACTIONS (5)
  - Acute myocardial infarction [Recovering/Resolving]
  - Aortic arteriosclerosis [Not Recovered/Not Resolved]
  - Subclavian arteriosclerosis [Unknown]
  - Brachiocephalic arteriosclerosis [Unknown]
  - Carotid arteriosclerosis [Unknown]

NARRATIVE: CASE EVENT DATE: 20200804
